FAERS Safety Report 5044120-X (Version None)
Quarter: 2006Q2

REPORT INFORMATION
  Report Type: 
  Country: None (occurrence: None)
  Receive Date: 20060601
  Receipt Date: 20060406
  Transmission Date: 20061013
  Serious: No
  Sender: FDA-Public Use
  Company Number: US200603006664

PATIENT
  Age: 15 Year
  Sex: Female

DRUGS (1)
  1. CYMBALTA [Suspect]
     Indication: EATING DISORDER
     Dosage: 20 MG
     Dates: start: 20060321, end: 20060401

REACTIONS (14)
  - CRYING [None]
  - EDUCATIONAL PROBLEM [None]
  - FATIGUE [None]
  - FEELING ABNORMAL [None]
  - FEELING OF DESPAIR [None]
  - HOT FLUSH [None]
  - HYPOAESTHESIA [None]
  - INFLUENZA LIKE ILLNESS [None]
  - INSOMNIA [None]
  - MALAISE [None]
  - MIGRAINE [None]
  - NAUSEA [None]
  - NIGHT SWEATS [None]
  - SOMNOLENCE [None]
